FAERS Safety Report 9699287 (Version 1)
Quarter: 2013Q4

REPORT INFORMATION
  Report Type: Spontaneous
  Country: US (occurrence: US)
  Receive Date: 20131120
  Receipt Date: 20131120
  Transmission Date: 20140711
  Serious: No
  Sender: FDA-Public Use
  Company Number: US-GILEAD-2008-0015415

PATIENT
  Sex: Male
  Weight: 90.72 kg

DRUGS (13)
  1. LETAIRIS [Suspect]
     Indication: PULMONARY ARTERIAL HYPERTENSION
     Route: 048
     Dates: end: 200801
  2. LEVAQUIN [Concomitant]
     Route: 048
  3. OXYGEN [Concomitant]
     Dosage: CONTINUOUS
     Route: 045
  4. ALDACTONE [Concomitant]
     Route: 048
  5. LASIX [Concomitant]
     Route: 048
  6. COUMADIN [Concomitant]
     Route: 048
  7. PROVENTIL [Concomitant]
     Route: 055
  8. LANOXIN [Concomitant]
     Route: 048
  9. SPIRIVA [Concomitant]
     Route: 055
  10. MAGNESIUM OXIDE [Concomitant]
     Route: 048
  11. ADVAIR [Concomitant]
     Route: 055
  12. FERROUS SULFATE [Concomitant]
     Route: 048
  13. CARDIZEM [Concomitant]
     Route: 048

REACTIONS (1)
  - Cough [Unknown]
